FAERS Safety Report 12566437 (Version 5)
Quarter: 2016Q4

REPORT INFORMATION
  Report Type: Report from Study
  Country: IQ (occurrence: IQ)
  Receive Date: 20160718
  Receipt Date: 20161212
  Transmission Date: 20170207
  Serious: Yes (Other)
  Sender: FDA-Public Use
  Company Number: PHHY2015IQ097474

PATIENT
  Sex: Male

DRUGS (9)
  1. HYDROXYUREA. [Concomitant]
     Active Substance: HYDROXYUREA
     Dosage: 4 DF, QD
     Route: 048
  2. HYDROXYUREA. [Concomitant]
     Active Substance: HYDROXYUREA
     Dosage: 2 DF, QD
     Route: 048
     Dates: start: 201607
  3. HYDROXYUREA. [Concomitant]
     Active Substance: HYDROXYUREA
     Indication: PRODUCT USED FOR UNKNOWN INDICATION
     Dosage: 4 DF, QD
     Route: 048
  4. HYDROXYUREA. [Concomitant]
     Active Substance: HYDROXYUREA
     Dosage: 4 DF, QD
     Route: 048
     Dates: start: 201605
  5. HYDROXYUREA. [Concomitant]
     Active Substance: HYDROXYUREA
     Dosage: 6 DF, QD
     Route: 048
     Dates: start: 201607, end: 201607
  6. INTERFERON [Concomitant]
     Active Substance: INTERFERON
     Indication: PRODUCT USED FOR UNKNOWN INDICATION
     Route: 065
  7. TASIGNA [Suspect]
     Active Substance: NILOTINIB
     Indication: CHRONIC MYELOID LEUKAEMIA
     Dosage: 400 MG, Q12H
     Route: 048
     Dates: start: 2013
  8. HYDROXYUREA. [Concomitant]
     Active Substance: HYDROXYUREA
     Dosage: 6 DF, QD
     Route: 048
     Dates: start: 201602, end: 201605
  9. ZYLORIC [Concomitant]
     Active Substance: ALLOPURINOL
     Indication: PRODUCT USED FOR UNKNOWN INDICATION
     Dosage: 1 DF, QD
     Route: 048
     Dates: end: 20160118

REACTIONS (18)
  - Thrombocytopenia [Recovering/Resolving]
  - Splenomegaly [Unknown]
  - Headache [Not Recovered/Not Resolved]
  - Leukocytosis [Recovered/Resolved]
  - Localised oedema [Unknown]
  - Leukocytosis [Recovered/Resolved]
  - Exposure via father [Not Recovered/Not Resolved]
  - Leukocytosis [Not Recovered/Not Resolved]
  - Leukocytosis [Recovered/Resolved]
  - Pyrexia [Not Recovered/Not Resolved]
  - Sleep disorder [Unknown]
  - Oropharyngeal pain [Recovering/Resolving]
  - Night sweats [Not Recovered/Not Resolved]
  - Anxiety [Not Recovered/Not Resolved]
  - Influenza [Not Recovered/Not Resolved]
  - Leukopenia [Not Recovered/Not Resolved]
  - White blood cell count increased [Unknown]
  - Incorrect drug administration duration [Unknown]

NARRATIVE: CASE EVENT DATE: 20151219
